FAERS Safety Report 22166973 (Version 1)
Quarter: 2023Q2

REPORT INFORMATION
  Report Type: Spontaneous
  Country: US (occurrence: US)
  Receive Date: 20230403
  Receipt Date: 20230403
  Transmission Date: 20230722
  Serious: No
  Sender: FDA-Public Use
  Company Number: US-BAYER-2023A037854

PATIENT
  Age: 26 Year
  Sex: Female

DRUGS (3)
  1. MIRENA [Suspect]
     Active Substance: LEVONORGESTREL
     Indication: Contraception
     Dosage: 20?G/DAY
     Route: 015
     Dates: start: 201612
  2. MIRENA [Suspect]
     Active Substance: LEVONORGESTREL
     Indication: Narcolepsy
  3. MIRENA [Suspect]
     Active Substance: LEVONORGESTREL
     Indication: Cataplexy

REACTIONS (3)
  - Anxiety [None]
  - Back pain [None]
  - Arthralgia [None]
